FAERS Safety Report 14760379 (Version 1)
Quarter: 2018Q2

REPORT INFORMATION
  Report Type: Other
  Country: ES (occurrence: ES)
  Receive Date: 20180414
  Receipt Date: 20180414
  Transmission Date: 20180711
  Serious: Yes (Hospitalization, Other)
  Sender: FDA-Public Use
  Company Number: ES-MACLEODS PHARMACEUTICALS US LTD-MAC2018012583

PATIENT

DRUGS (3)
  1. ESCITALOPRAM OXALATE. [Suspect]
     Active Substance: ESCITALOPRAM OXALATE
     Indication: DEPRESSION
     Dosage: 10 MG, QD
     Route: 048
     Dates: start: 20170405, end: 20170907
  2. DEXAMETHASONE. [Interacting]
     Active Substance: DEXAMETHASONE
     Indication: ADDISON^S DISEASE
     Dosage: QQ
     Route: 048
     Dates: start: 2016, end: 20170907
  3. HYDROALTESONE [Interacting]
     Active Substance: HYDROCORTISONE
     Indication: ADDISON^S DISEASE
     Dosage: 20 MG, QD, 10 TABLETS
     Route: 048
     Dates: start: 2011

REACTIONS (2)
  - Cushing^s syndrome [Recovering/Resolving]
  - Drug interaction [Recovering/Resolving]

NARRATIVE: CASE EVENT DATE: 20170907
